FAERS Safety Report 4697673-5 (Version None)
Quarter: 2005Q2

REPORT INFORMATION
  Report Type: 
  Country: None (occurrence: None)
  Receive Date: 20050622
  Receipt Date: 20050603
  Transmission Date: 20051028
  Serious: Yes (Hospitalization)
  Sender: FDA-Public Use
  Company Number: USA050699420

PATIENT
  Age: 48 Year
  Sex: Male

DRUGS (1)
  1. HUMALOG [Suspect]
     Dates: start: 19990101

REACTIONS (6)
  - ARTHROPOD BITE [None]
  - BLOOD GLUCOSE INCREASED [None]
  - DEVICE FAILURE [None]
  - INFECTED INSECT BITE [None]
  - PHARMACEUTICAL PRODUCT COMPLAINT [None]
  - WOUND [None]
